FAERS Safety Report 13466740 (Version 1)
Quarter: 2017Q2

REPORT INFORMATION
  Report Type: Spontaneous
  Country: US (occurrence: US)
  Receive Date: 20170420
  Receipt Date: 20170420
  Transmission Date: 20170830
  Serious: No
  Sender: FDA-Public Use
  Company Number: None

PATIENT
  Age: 51 Year
  Sex: Female

DRUGS (1)
  1. COPAXONE [Suspect]
     Active Substance: GLATIRAMER ACETATE
     Indication: MULTIPLE SCLEROSIS
     Dosage: DOSE - 40 MG/ML
     Route: 058
     Dates: start: 2016, end: 2017

REACTIONS (6)
  - Injection site pain [None]
  - Nervousness [None]
  - Intervertebral disc protrusion [None]
  - Malaise [None]
  - Injection site swelling [None]
  - Mobility decreased [None]

NARRATIVE: CASE EVENT DATE: 20170308
